FAERS Safety Report 4609401-X (Version None)
Quarter: 2005Q2

REPORT INFORMATION
  Report Type: 
  Country: None (occurrence: None)
  Receive Date: 20050225
  Receipt Date: 20041109
  Transmission Date: 20051028
  Serious: No
  Sender: FDA-Public Use
  Company Number: 2004US002274

PATIENT
  Age: 50 Year
  Sex: Female
  Weight: 85.3 kg

DRUGS (6)
  1. ALOXI [Suspect]
     Indication: PROPHYLAXIS OF NAUSEA AND VOMITING
     Dosage: 0.25 MG, SINGLE, IV DRIP
     Route: 041
     Dates: start: 20041004, end: 20041004
  2. DECADRON [Concomitant]
  3. SODIUM CHLORIDE [Concomitant]
  4. FLUOROURACIL [Concomitant]
  5. EPIRUBICIN [Concomitant]
  6. CYTOXAN [Concomitant]

REACTIONS (2)
  - DRUG INEFFECTIVE [None]
  - NAUSEA [None]
